FAERS Safety Report 4868058-3 (Version None)
Quarter: 2005Q4

REPORT INFORMATION
  Report Type: 
  Country: None (occurrence: None)
  Receive Date: 20051229
  Receipt Date: 20051221
  Transmission Date: 20060501
  Serious: Yes (Hospitalization, Other)
  Sender: FDA-Public Use
  Company Number: US-JNJFOC-20051204923

PATIENT
  Age: 41 Year
  Sex: Male

DRUGS (1)
  1. FENTANYL [Suspect]
     Route: 062

REACTIONS (5)
  - DRUG ADMINISTRATION ERROR [None]
  - DRUG WITHDRAWAL SYNDROME [None]
  - PNEUMONIA [None]
  - SOMNOLENCE [None]
  - TREMOR [None]
